FAERS Safety Report 15337982 (Version 3)
Quarter: 2018Q4

REPORT INFORMATION
  Report Type: Spontaneous
  Country: IT (occurrence: IT)
  Receive Date: 20180831
  Receipt Date: 20181008
  Transmission Date: 20190204
  Serious: Yes (Hospitalization, Other)
  Sender: FDA-Public Use
  Company Number: IT-ASTELLAS-2018US038219

PATIENT
  Age: 61 Year
  Sex: Female

DRUGS (2)
  1. TACROLIMUS. [Suspect]
     Active Substance: TACROLIMUS
     Dosage: UNK UNK, UNKNOWN FREQ.
     Route: 065
  2. TACROLIMUS. [Suspect]
     Active Substance: TACROLIMUS
     Indication: LIVER TRANSPLANT
     Route: 065
     Dates: start: 2016

REACTIONS (9)
  - Guillain-Barre syndrome [Recovered/Resolved]
  - Septic shock [Recovering/Resolving]
  - Enterococcal infection [Recovering/Resolving]
  - Immune reconstitution inflammatory syndrome [Recovering/Resolving]
  - Cholangitis [Recovering/Resolving]
  - Clostridial infection [Recovering/Resolving]
  - Escherichia infection [Recovering/Resolving]
  - Cytomegalovirus infection [Recovering/Resolving]
  - Biliary fistula [Unknown]

NARRATIVE: CASE EVENT DATE: 2017
